FAERS Safety Report 9227399 (Version 2)
Quarter: 2013Q2

REPORT INFORMATION
  Report Type: Spontaneous
  Country: US (occurrence: US)
  Receive Date: 20130412
  Receipt Date: 20130603
  Transmission Date: 20140414
  Serious: No
  Sender: FDA-Public Use
  Company Number: US-PFIZER INC-2013113957

PATIENT
  Age: 41 Year
  Sex: Female
  Weight: 58.96 kg

DRUGS (1)
  1. ADVIL CONGESTION RELIEF [Suspect]
     Indication: PAIN
     Dosage: UNK, TWO TIMES A DAY
     Route: 048
     Dates: end: 20130408

REACTIONS (1)
  - Drug ineffective [Unknown]
